FAERS Safety Report 5392005-1 (Version None)
Quarter: 2007Q3

REPORT INFORMATION
  Report Type: 
  Country: None (occurrence: None)
  Receive Date: 20070720
  Receipt Date: 20070712
  Transmission Date: 20080115
  Serious: Yes (Other)
  Sender: FDA-Public Use
  Company Number: BR-JNJFOC-20070703253

PATIENT
  Age: 34 Year
  Sex: Female
  Weight: 53 kg

DRUGS (1)
  1. ORTHO EVRA [Suspect]
     Indication: CONTRACEPTION
     Route: 062

REACTIONS (4)
  - BLOOD PRESSURE INCREASED [None]
  - PALLOR [None]
  - TACHYCARDIA [None]
  - TREMOR [None]
